FAERS Safety Report 19000490 (Version 1)
Quarter: 2021Q1

REPORT INFORMATION
  Report Type: Spontaneous
  Country: US (occurrence: US)
  Receive Date: 20210311
  Receipt Date: 20210311
  Transmission Date: 20210420
  Serious: No
  Sender: FDA-Public Use
  Company Number: US-ADAMAS_PHARMACEUTICALS-USA-POI1235202100025

PATIENT
  Age: 71 Year
  Sex: Male

DRUGS (2)
  1. OSMOLEX ER [Suspect]
     Active Substance: AMANTADINE
     Indication: PARKINSON^S DISEASE
     Dosage: ONE 129 MG TABLET AND ONE 193 MG TABLET
     Dates: end: 202002
  2. OSMOLEX ER [Suspect]
     Active Substance: AMANTADINE
     Dosage: ONE 129 MG TABLET AND ONE 193 MG TABLET
     Dates: start: 202002

REACTIONS (2)
  - Gait disturbance [Recovered/Resolved]
  - Movement disorder [Recovered/Resolved]

NARRATIVE: CASE EVENT DATE: 202002
